FAERS Safety Report 22064334 (Version 1)
Quarter: 2023Q1

REPORT INFORMATION
  Report Type: Spontaneous
  Country: US (occurrence: None)
  Receive Date: 20230305
  Receipt Date: 20230305
  Transmission Date: 20230417
  Serious: Yes (Other)
  Sender: FDA-Public Use
  Company Number: None

PATIENT
  Sex: 0

DRUGS (2)
  1. BUPRENORPHINE HYDROCHLORIDE [Suspect]
     Active Substance: BUPRENORPHINE HYDROCHLORIDE
     Indication: Pain
     Dosage: OTHER QUANTITY : 3 TABLET(S);?FREQUENCY : EVERY 8 HOURS;?
     Route: 060
     Dates: start: 20220401, end: 20221001
  2. BUPRENORPHINE HYDROCHLORIDE [Suspect]
     Active Substance: BUPRENORPHINE HYDROCHLORIDE
     Indication: Musculoskeletal disorder

REACTIONS (4)
  - Dental caries [None]
  - Hyperaesthesia teeth [None]
  - Tooth injury [None]
  - Dental caries [None]

NARRATIVE: CASE EVENT DATE: 20220901
